FAERS Safety Report 18265847 (Version 1)
Quarter: 2020Q3

REPORT INFORMATION
  Report Type: Report from Study
  Country: US (occurrence: US)
  Receive Date: 20200914
  Receipt Date: 20200914
  Transmission Date: 20201103
  Serious: Yes (Hospitalization)
  Sender: FDA-Public Use
  Company Number: US-ROCHE-2674938

PATIENT
  Age: 62 Year
  Sex: Male
  Weight: 92.4 kg

DRUGS (3)
  1. RITUXIMAB. [Suspect]
     Active Substance: RITUXIMAB
     Indication: MANTLE CELL LYMPHOMA
     Dosage: CYCLE 1?6: RITUXIMAB 375 MG/M2 IV ON DAY 1 OF EACH CYCLE.
     Route: 041
     Dates: start: 20200630
  2. VENETOCLAX. [Suspect]
     Active Substance: VENETOCLAX
     Indication: MANTLE CELL LYMPHOMA
     Dosage: CYCLE 1. (DAY 1?7: 20 MG; DAY 8?14: 50 MG; DAY 15?21: 100 MG; DAY 22?28: 200 MG.
     Route: 048
     Dates: start: 20200630
  3. BENDAMUSTINE [Suspect]
     Active Substance: BENDAMUSTINE
     Indication: MANTLE CELL LYMPHOMA
     Dosage: CYCLE 1?6: BENDAMUSTINE 90 MG/M2 IV ON DAYS 1 AND 2 OF EACH CYCLE.
     Route: 042
     Dates: start: 20200630

REACTIONS (1)
  - Localised infection [Recovered/Resolved]

NARRATIVE: CASE EVENT DATE: 20200709
